FAERS Safety Report 5036930-X (Version None)
Quarter: 2006Q2

REPORT INFORMATION
  Report Type: 
  Country: None (occurrence: None)
  Receive Date: 20060622
  Receipt Date: 20060612
  Transmission Date: 20061013
  Serious: Yes (Other)
  Sender: FDA-Public Use
  Company Number: HQWYE559521APR04

PATIENT
  Age: 59 Year
  Sex: Female

DRUGS (3)
  1. PREMPRO [Suspect]
     Indication: HORMONE REPLACEMENT THERAPY
     Dosage: ORAL
     Route: 048
  2. PREMARIN [Suspect]
     Indication: OESTROGEN REPLACEMENT THERAPY
     Dosage: ORAL
     Route: 048
  3. PROVERA [Suspect]
     Dosage: 2.5MG
     Dates: start: 19950101

REACTIONS (6)
  - BREAST CANCER METASTATIC [None]
  - DEEP VEIN THROMBOSIS [None]
  - HYPERTENSION [None]
  - INFUSION SITE THROMBOSIS [None]
  - PROGESTERONE RECEPTOR ASSAY POSITIVE [None]
  - THROMBOSIS [None]
